FAERS Safety Report 24396412 (Version 1)
Quarter: 2024Q4

REPORT INFORMATION
  Report Type: Spontaneous
  Country: CN (occurrence: CN)
  Receive Date: 20241004
  Receipt Date: 20241004
  Transmission Date: 20250115
  Serious: Yes (Hospitalization, Other)
  Sender: RANBAXY
  Company Number: CN-SUN PHARMACEUTICAL INDUSTRIES LTD-2024R1-470796

PATIENT
  Age: 41 Year
  Sex: Female

DRUGS (11)
  1. CAPECITABINE [Suspect]
     Active Substance: CAPECITABINE
     Indication: Chemotherapy
     Dosage: 1000 MILLIGRAM/SQ. METER, BID
     Route: 048
  2. LEUCOVORIN CALCIUM [Suspect]
     Active Substance: LEUCOVORIN CALCIUM
     Indication: Chemotherapy
     Dosage: 500 MILLIGRAM, DAILY
     Route: 065
  3. IRINOTECAN [Suspect]
     Active Substance: IRINOTECAN
     Indication: Chemotherapy
     Dosage: 240 MILLIGRAM, DAILY
     Route: 065
  4. OXALIPLATIN [Suspect]
     Active Substance: OXALIPLATIN
     Indication: Chemotherapy
     Dosage: 130 MILLIGRAM/SQ. METER, ON DAY 1
     Route: 065
  5. OXALIPLATIN [Suspect]
     Active Substance: OXALIPLATIN
     Dosage: 120 MILLIGRAM/SQ. METER
     Route: 065
  6. ZOLEDRONIC ACID [Suspect]
     Active Substance: ZOLEDRONIC ACID
     Indication: Metastases to bone
     Dosage: UNK
     Route: 065
  7. BEVACIZUMAB [Suspect]
     Active Substance: BEVACIZUMAB
     Indication: Chemotherapy
     Dosage: UNK
     Route: 065
  8. FLUOROURACIL [Suspect]
     Active Substance: FLUOROURACIL
     Indication: Product used for unknown indication
     Dosage: 500 MILLIGRAM
     Route: 042
  9. FLUOROURACIL [Suspect]
     Active Substance: FLUOROURACIL
     Dosage: 3000 MILLIGRAM
     Route: 042
  10. REGORAFENIB [Suspect]
     Active Substance: REGORAFENIB
     Indication: Metastases to liver
     Dosage: 80 MILLIGRAM
     Route: 065
  11. SINTILIMAB [Suspect]
     Active Substance: SINTILIMAB
     Indication: Metastases to liver
     Dosage: 200 MILLIGRAM
     Route: 065

REACTIONS (3)
  - Disease progression [Unknown]
  - Drug resistance [Unknown]
  - Fibrosarcoma [Unknown]
